FAERS Safety Report 5154237-7 (Version None)
Quarter: 2006Q4

REPORT INFORMATION
  Report Type: 
  Country: None (occurrence: None)
  Receive Date: 20061120
  Receipt Date: 20050926
  Transmission Date: 20070319
  Serious: Yes (Other)
  Sender: FDA-Public Use
  Company Number: PHEH2005US10676

PATIENT
  Age: 66 Year
  Sex: Female
  Weight: 72.108 kg

DRUGS (35)
  1. CYMBALTA [Concomitant]
  2. TYLENOL PM [Concomitant]
  3. ANALPRAM HC [Concomitant]
  4. LEXAPRO [Concomitant]
  5. ZOMETA [Suspect]
     Indication: HYPERCALCAEMIA
     Dosage: UNK, UNK
     Dates: start: 20011226, end: 20041208
  6. ZOMETA [Suspect]
     Dates: start: 20050401, end: 20050825
  7. AREDIA [Suspect]
     Indication: HYPERCALCAEMIA
     Dosage: 90MG QMO
     Dates: start: 20010315, end: 20011226
  8. AREDIA [Suspect]
     Dates: start: 20030201, end: 20050101
  9. MARINOL [Concomitant]
     Indication: NAUSEA
     Dosage: 5MG UNK
  10. PEPCID [Concomitant]
  11. PERCOCET [Concomitant]
  12. AMBIEN [Concomitant]
     Indication: SLEEP DISORDER
     Dosage: 10MG QHS
     Dates: start: 20020123
  13. PAXIL [Concomitant]
     Indication: DEPRESSION
     Dosage: 40MG QD
     Dates: start: 20020123
  14. COUMADIN [Concomitant]
     Dosage: 1MG QD
  15. LIPITOR [Concomitant]
     Dosage: 10MG QD
  16. CELEBREX [Concomitant]
     Indication: ARTHRITIS
     Dosage: 200MG BID
     Dates: start: 20010329
  17. LOVENOX [Concomitant]
     Dates: start: 20030101
  18. NEURONTIN [Concomitant]
     Indication: MUSCLE SPASMS
     Dosage: 1200MG QD
     Dates: start: 20030801
  19. QUININE SULFATE [Concomitant]
     Indication: MUSCLE SPASMS
     Dates: start: 20030402
  20. ALLEGRA [Concomitant]
  21. IBUPROFEN [Concomitant]
  22. FEMARA [Concomitant]
     Dosage: 2.5MG QD
     Dates: start: 20020123
  23. HERCEPTIN [Concomitant]
     Dosage: Q3WK
     Dates: start: 20020626
  24. TAXOTERE [Concomitant]
     Dosage: UNK, UNK
     Dates: start: 20010328, end: 20010703
  25. INNOHEP [Concomitant]
     Dosage: 13,000 UNK
     Dates: start: 20030820, end: 20030922
  26. ANZEMET [Concomitant]
  27. DEXAMETHASONE TAB [Concomitant]
  28. GEMZAR [Concomitant]
     Dates: start: 20010827, end: 20010829
  29. NAVELBINE [Concomitant]
     Dosage: UNK, UNK
     Dates: start: 20010703, end: 20020910
  30. LEVAQUIN [Concomitant]
  31. ATIVAN [Concomitant]
     Indication: NAUSEA
     Dosage: 1MG Q8H PRN
     Dates: start: 20020123
  32. PROCRIT [Concomitant]
  33. NEXIUM [Concomitant]
  34. OSCAL [Concomitant]
  35. VALIUM [Concomitant]

REACTIONS (46)
  - ARTHRITIS [None]
  - BLOOD CALCIUM DECREASED [None]
  - BLOOD CREATININE INCREASED [None]
  - BLOOD UREA INCREASED [None]
  - BONE DEBRIDEMENT [None]
  - BONE DISORDER [None]
  - CATHETER RELATED COMPLICATION [None]
  - CATHETER REMOVAL [None]
  - CONFUSIONAL STATE [None]
  - COORDINATION ABNORMAL [None]
  - COUGH [None]
  - DEEP VEIN THROMBOSIS [None]
  - DENTAL TREATMENT [None]
  - DEPRESSION [None]
  - DIZZINESS [None]
  - DYSPNOEA [None]
  - ERYTHEMA [None]
  - EXCESSIVE GRANULATION TISSUE [None]
  - FATIGUE [None]
  - FISTULA [None]
  - GASTROOESOPHAGEAL REFLUX DISEASE [None]
  - GINGIVAL ULCERATION [None]
  - GINGIVITIS [None]
  - HEADACHE [None]
  - HIATUS HERNIA [None]
  - HYPERCALCAEMIA [None]
  - IMPAIRED HEALING [None]
  - INCISIONAL DRAINAGE [None]
  - MUSCLE SPASMS [None]
  - MUSCULAR WEAKNESS [None]
  - NAUSEA [None]
  - NEUROPATHY PERIPHERAL [None]
  - ORAL SURGERY [None]
  - OSTEOMYELITIS [None]
  - OSTEONECROSIS [None]
  - PAIN [None]
  - PAIN IN EXTREMITY [None]
  - PLEURAL EFFUSION [None]
  - PRIMARY SEQUESTRUM [None]
  - RASH [None]
  - RHINITIS [None]
  - SWELLING [None]
  - TOOTH DISORDER [None]
  - TOOTH EXTRACTION [None]
  - VISUAL DISTURBANCE [None]
  - VOMITING [None]
